FAERS Safety Report 5360429-4 (Version None)
Quarter: 2007Q2

REPORT INFORMATION
  Report Type: 
  Country: None (occurrence: None)
  Receive Date: 20070618
  Receipt Date: 20070608
  Transmission Date: 20071010
  Serious: Yes (Life-Threatening, Hospitalization)
  Sender: FDA-Public Use
  Company Number: JP-AVENTIS-200711182JP

PATIENT
  Age: 76 Year
  Sex: Male
  Weight: 60.3 kg

DRUGS (5)
  1. LASIX [Suspect]
     Indication: HYPERTENSION
     Dates: start: 20030801, end: 20070509
  2. AMLODIN [Concomitant]
     Indication: HYPERTENSION
     Dates: start: 19950101, end: 20070509
  3. LONGES [Concomitant]
     Indication: HYPERTENSION
     Dates: start: 19950101, end: 20070509
  4. ARTIST [Concomitant]
     Indication: HYPERTENSION
     Dates: start: 19950101, end: 20070509
  5. SALOBEL [Concomitant]
     Indication: HYPERURICAEMIA
     Dates: start: 19850901, end: 20070508

REACTIONS (12)
  - ALANINE AMINOTRANSFERASE INCREASED [None]
  - ASPARTATE AMINOTRANSFERASE INCREASED [None]
  - BLOOD ALKALINE PHOSPHATASE INCREASED [None]
  - BLOOD LACTATE DEHYDROGENASE INCREASED [None]
  - GAMMA-GLUTAMYLTRANSFERASE INCREASED [None]
  - HAEMATOCRIT DECREASED [None]
  - HAEMOGLOBIN DECREASED [None]
  - MEAN CELL HAEMOGLOBIN CONCENTRATION DECREASED [None]
  - MEAN CELL HAEMOGLOBIN DECREASED [None]
  - MEAN CELL VOLUME ABNORMAL [None]
  - PNEUMONIA [None]
  - RED BLOOD CELL COUNT DECREASED [None]
